FAERS Safety Report 4708363-4 (Version None)
Quarter: 2005Q3

REPORT INFORMATION
  Report Type: 
  Country: None (occurrence: None)
  Receive Date: 20050706
  Receipt Date: 20050624
  Transmission Date: 20060218
  Serious: Yes (Hospitalization)
  Sender: FDA-Public Use
  Company Number: KII-2005-0017252

PATIENT
  Age: 43 Year
  Sex: Male

DRUGS (4)
  1. OXYCONTIN [Suspect]
     Dosage: OAL
     Route: 048
  2. ISOPROPANOL (ISOPROPANOL) [Suspect]
     Dosage: ORAL
     Route: 048
  3. ACETAMINOPHEN [Suspect]
  4. ACETONE (ACETONE) [Suspect]

REACTIONS (5)
  - BLOOD PRESSURE SYSTOLIC INCREASED [None]
  - EROSIVE OESOPHAGITIS [None]
  - HAEMATEMESIS [None]
  - MULTIPLE DRUG OVERDOSE [None]
  - SINUS TACHYCARDIA [None]
